FAERS Safety Report 22035883 (Version 2)
Quarter: 2023Q2

REPORT INFORMATION
  Report Type: Spontaneous
  Country: JP (occurrence: JP)
  Receive Date: 20230224
  Receipt Date: 20230502
  Transmission Date: 20230721
  Serious: Yes (Other)
  Sender: FDA-Public Use
  Company Number: JP-OTSUKA-2023_004652

PATIENT
  Age: 39 Year
  Sex: Male

DRUGS (7)
  1. ICLUSIG [Suspect]
     Active Substance: PONATINIB
     Indication: Philadelphia positive acute lymphocytic leukaemia
     Dosage: 45 MILLIGRAM
     Route: 065
  2. ICLUSIG [Suspect]
     Active Substance: PONATINIB
     Dosage: 15 MILLIGRAM
     Route: 065
  3. ICLUSIG [Suspect]
     Active Substance: PONATINIB
     Dosage: 15 MILLIGRAM
     Route: 065
  4. BLINATUMOMAB [Concomitant]
     Active Substance: BLINATUMOMAB
     Indication: Philadelphia positive acute lymphocytic leukaemia
     Dosage: UNK
     Route: 065
  5. BLINATUMOMAB [Concomitant]
     Active Substance: BLINATUMOMAB
     Dosage: UNK
     Route: 065
  6. INOTUZUMAB OZOGAMICIN [Concomitant]
     Active Substance: INOTUZUMAB OZOGAMICIN
     Indication: Philadelphia positive acute lymphocytic leukaemia
     Dosage: UNK
     Route: 065
  7. INOTUZUMAB OZOGAMICIN [Concomitant]
     Active Substance: INOTUZUMAB OZOGAMICIN
     Dosage: UNK
     Route: 065

REACTIONS (1)
  - Myelosuppression [Recovered/Resolved]
